FAERS Safety Report 4563897-0 (Version None)
Quarter: 2005Q1

REPORT INFORMATION
  Report Type: 
  Country: None (occurrence: None)
  Receive Date: 20050121
  Receipt Date: 20041124
  Transmission Date: 20050727
  Serious: Yes (Other)
  Sender: FDA-Public Use
  Company Number: 2004101179

PATIENT
  Sex: Male

DRUGS (3)
  1. CELEBREX [Suspect]
     Indication: PAIN
     Dates: end: 20040101
  2. HYDROCODONE (HYDROCODONE) [Concomitant]
  3. ESOMEPRAZOLE (ESOMEPRAZOLE) [Concomitant]

REACTIONS (6)
  - ANGINA PECTORIS [None]
  - CHEST PAIN [None]
  - GASTROINTESTINAL DISORDER [None]
  - HYPERTENSION [None]
  - MEMORY IMPAIRMENT [None]
  - RENAL PAIN [None]
